FAERS Safety Report 7546070-3 (Version None)
Quarter: 2011Q2

REPORT INFORMATION
  Report Type: 
  Country: None (occurrence: None)
  Receive Date: 20110614
  Receipt Date: 20110602
  Transmission Date: 20111010
  Serious: Yes (Other)
  Sender: FDA-Public Use
  Company Number: PHHY2011BR03028

PATIENT
  Sex: Female

DRUGS (1)
  1. CLOZAPINE [Suspect]
     Dosage: 100 MG, UNK

REACTIONS (4)
  - NEOPLASM MALIGNANT [None]
  - CONTUSION [None]
  - DEPRESSION [None]
  - SEDATION [None]
